FAERS Safety Report 17492400 (Version 1)
Quarter: 2020Q1

REPORT INFORMATION
  Report Type: Report from Study
  Country: CA (occurrence: CA)
  Receive Date: 20200303
  Receipt Date: 20200303
  Transmission Date: 20200409
  Serious: Yes (Other)
  Sender: FDA-Public Use
  Company Number: CA-BAYER-2020-032374

PATIENT
  Age: 21 Year
  Sex: Female

DRUGS (1)
  1. KYLEENA [Suspect]
     Active Substance: LEVONORGESTREL
     Indication: CONTRACEPTION
     Dosage: 17.5 ?G PER DAY, CONT
     Route: 015
     Dates: start: 20200221, end: 20200221

REACTIONS (2)
  - Device breakage [None]
  - Complication of device insertion [None]

NARRATIVE: CASE EVENT DATE: 20200221
